FAERS Safety Report 4530352-3 (Version None)
Quarter: 2004Q4

REPORT INFORMATION
  Report Type: 
  Country: None (occurrence: None)
  Receive Date: 20041216
  Receipt Date: 20041216
  Transmission Date: 20050328
  Serious: Yes (Other)
  Sender: FDA-Public Use
  Company Number: None

PATIENT
  Sex: Male
  Weight: 65.7716 kg

DRUGS (2)
  1. NORTRIPTYLINE 25MG ONE OD IN AM [Suspect]
     Indication: DEPRESSION
     Dosage: 25 MG PO OD
     Route: 048
     Dates: start: 20021101
  2. NORTRIPTYLINE 25MG ONE OD IN AM [Suspect]
     Indication: PANIC DISORDER
     Dosage: 25 MG PO OD
     Route: 048
     Dates: start: 20021101

REACTIONS (1)
  - STOMACH DISCOMFORT [None]
